FAERS Safety Report 9155775 (Version 2)
Quarter: 2013Q2

REPORT INFORMATION
  Report Type: Spontaneous
  Country: US (occurrence: US)
  Receive Date: 20130311
  Receipt Date: 20130408
  Transmission Date: 20140414
  Serious: Yes (Death, Hospitalization)
  Sender: FDA-Public Use
  Company Number: US-B.I. PHARMACEUTICALS,INC./RIDGEFIELD-2013-BI-06179BP

PATIENT
  Age: 80 Year
  Sex: Female

DRUGS (2)
  1. PRADAXA [Suspect]
     Indication: ATRIAL FIBRILLATION
     Dosage: 300 MG
  2. STEROID THERAPY [Concomitant]
     Indication: LUNG DISORDER
     Route: 042

REACTIONS (3)
  - Gastrointestinal haemorrhage [Fatal]
  - Peptic ulcer perforation [Fatal]
  - Peptic ulcer [Fatal]
